FAERS Safety Report 5113278-6 (Version None)
Quarter: 2006Q3

REPORT INFORMATION
  Report Type: 
  Country: None (occurrence: None)
  Receive Date: 20060920
  Receipt Date: 20060912
  Transmission Date: 20061208
  Serious: Yes (Other)
  Sender: FDA-Public Use
  Company Number: 430104K06USA

PATIENT
  Age: 53 Year
  Sex: Female

DRUGS (2)
  1. NOVANTRONE [Suspect]
     Indication: MULTIPLE SCLEROSIS
     Dates: start: 20050322
  2. COPAXONE [Suspect]

REACTIONS (5)
  - BLOOD GLUCOSE FLUCTUATION [None]
  - DIABETES MELLITUS [None]
  - PANCREATIC DISORDER [None]
  - PROCEDURAL COMPLICATION [None]
  - SYNCOPE [None]
